FAERS Safety Report 8035105-X (Version None)
Quarter: 2012Q1

REPORT INFORMATION
  Report Type: 
  Country: None (occurrence: None)
  Receive Date: 20120111
  Receipt Date: 20120105
  Transmission Date: 20120608
  Serious: Yes (Other)
  Sender: FDA-Public Use
  Company Number: US-BIOGENIDEC-2011BI034209

PATIENT
  Age: 37 Year
  Sex: Female

DRUGS (17)
  1. IBUPROFEN [Concomitant]
     Indication: HEADACHE
  2. TEMAZEPAM [Concomitant]
     Route: 048
  3. SEROQUEL [Concomitant]
     Route: 048
  4. TIZANIDINE HCL [Concomitant]
     Route: 048
  5. ACETAMINOPHEN [Concomitant]
     Route: 048
  6. SEROQUEL [Concomitant]
     Route: 048
  7. ACETAMINOPHEN [Concomitant]
     Indication: PAIN
     Route: 048
  8. TYSABRI [Suspect]
     Indication: MULTIPLE SCLEROSIS
     Route: 042
     Dates: start: 20080806, end: 20110805
  9. HYDROCODONE BITARTRATE [Concomitant]
     Indication: PAIN
     Route: 048
  10. CYMBALTA [Concomitant]
     Route: 048
  11. METHYLPHENIDATE [Concomitant]
     Indication: FATIGUE
     Route: 048
  12. NITROFURANTOIN MACROCRYSTAL [Concomitant]
     Route: 048
  13. TYSABRI [Suspect]
     Route: 042
     Dates: start: 20111027, end: 20111128
  14. LUNESTA [Concomitant]
     Route: 048
  15. TYSABRI [Suspect]
     Route: 042
     Dates: start: 20120104
  16. TRAZODONE HCL [Concomitant]
     Route: 048
  17. HYDROCODONE BITARTRATE [Concomitant]
     Indication: HEADACHE
     Route: 048

REACTIONS (6)
  - WEIGHT DECREASED [None]
  - MEMORY IMPAIRMENT [None]
  - PROGRESSIVE MULTIFOCAL LEUKOENCEPHALOPATHY [None]
  - BLOOD GLUCOSE INCREASED [None]
  - DEPRESSION [None]
  - MULTIPLE SCLEROSIS RELAPSE [None]
